FAERS Safety Report 24000860 (Version 6)
Quarter: 2024Q3

REPORT INFORMATION
  Report Type: Spontaneous
  Country: CZ (occurrence: CZ)
  Receive Date: 20240621
  Receipt Date: 20240711
  Transmission Date: 20241016
  Serious: Yes (Life-Threatening, Other)
  Sender: PFIZER
  Company Number: CZ-Accord-427677

PATIENT
  Age: 39 Year
  Sex: Female

DRUGS (16)
  1. BRENTUXIMAB VEDOTIN [Suspect]
     Active Substance: BRENTUXIMAB VEDOTIN
     Indication: Anaplastic large cell lymphoma T- and null-cell types
     Dosage: 1.8 MILLIGRAM/KILOGRAM (BV-CHEP )
     Route: 042
     Dates: start: 20210623, end: 20211012
  2. BRENTUXIMAB VEDOTIN [Suspect]
     Active Substance: BRENTUXIMAB VEDOTIN
     Indication: T-cell lymphoma
     Dosage: 1.2 MILLIGRAM/KILOGRAM (BV-CHEP )
     Route: 042
  3. BRENTUXIMAB VEDOTIN [Suspect]
     Active Substance: BRENTUXIMAB VEDOTIN
     Indication: Lymphadenopathy
  4. DOXORUBICIN HYDROCHLORIDE [Suspect]
     Active Substance: DOXORUBICIN HYDROCHLORIDE
     Indication: Anaplastic large cell lymphoma T- and null-cell types
     Dosage: 50 MILLIGRAM/SQ. METER (BV-CHEP)
     Route: 042
     Dates: start: 20210623, end: 20211012
  5. DOXORUBICIN HYDROCHLORIDE [Suspect]
     Active Substance: DOXORUBICIN HYDROCHLORIDE
     Indication: T-cell lymphoma
  6. DOXORUBICIN HYDROCHLORIDE [Suspect]
     Active Substance: DOXORUBICIN HYDROCHLORIDE
     Indication: Lymphadenopathy
  7. ETOPOSIDE [Suspect]
     Active Substance: ETOPOSIDE
     Indication: Anaplastic large cell lymphoma T- and null-cell types
     Dosage: 100 MILLIGRAM/SQ. METER (BV-CHEP)
     Route: 042
     Dates: start: 20210623, end: 20211012
  8. ETOPOSIDE [Suspect]
     Active Substance: ETOPOSIDE
     Indication: T-cell lymphoma
  9. ETOPOSIDE [Suspect]
     Active Substance: ETOPOSIDE
     Indication: Lymphadenopathy
  10. CYCLOPHOSPHAMIDE [Suspect]
     Active Substance: CYCLOPHOSPHAMIDE
     Indication: Anaplastic large cell lymphoma T- and null-cell types
     Dosage: 750 MILLIGRAM/SQ. METER (BV-CHEP)
     Route: 042
     Dates: start: 20210623, end: 20211012
  11. CYCLOPHOSPHAMIDE [Suspect]
     Active Substance: CYCLOPHOSPHAMIDE
     Indication: T-cell lymphoma
  12. CYCLOPHOSPHAMIDE [Suspect]
     Active Substance: CYCLOPHOSPHAMIDE
     Indication: Lymphadenopathy
  13. PREDNISONE [Suspect]
     Active Substance: PREDNISONE
     Indication: Anaplastic large cell lymphoma T- and null-cell types
     Dosage: 100 MILLIGRAM (BV-CHEP ), 1X/DAY
     Route: 048
     Dates: start: 20210623, end: 20211012
  14. PREDNISONE [Suspect]
     Active Substance: PREDNISONE
     Indication: T-cell lymphoma
  15. PREDNISONE [Suspect]
     Active Substance: PREDNISONE
     Indication: Lymphadenopathy
  16. FILGRASTIM [Concomitant]
     Active Substance: FILGRASTIM
     Indication: Prophylaxis
     Dosage: UNK
     Route: 065
     Dates: start: 20210623

REACTIONS (11)
  - Neutropenia [Recovered/Resolved]
  - Toxicity to various agents [Unknown]
  - Arthralgia [Recovered/Resolved]
  - Microangiopathy [Unknown]
  - Raynaud^s phenomenon [Recovered/Resolved]
  - Neuropathy peripheral [Not Recovered/Not Resolved]
  - Vomiting [Recovered/Resolved]
  - Nausea [Recovered/Resolved]
  - Upper respiratory tract infection [Recovered/Resolved]
  - Tonsillitis [Recovered/Resolved]
  - Inappropriate schedule of product administration [Unknown]
